FAERS Safety Report 14783783 (Version 1)
Quarter: 2018Q2

REPORT INFORMATION
  Report Type: Spontaneous
  Country: HR (occurrence: HR)
  Receive Date: 20180420
  Receipt Date: 20180420
  Transmission Date: 20180711
  Serious: Yes (Hospitalization, Other)
  Sender: FDA-Public Use
  Company Number: HR-JNJFOC-20180420045

PATIENT
  Age: 70 Year
  Sex: Male

DRUGS (4)
  1. XARELTO [Suspect]
     Active Substance: RIVAROXABAN
     Indication: ATRIAL FIBRILLATION
     Route: 048
  2. ATORVASTATIN [Concomitant]
     Active Substance: ATORVASTATIN
     Route: 065
  3. RAMIPRIL HC [Concomitant]
     Route: 065
  4. CONCOR [Concomitant]
     Active Substance: BISOPROLOL FUMARATE
     Route: 065

REACTIONS (5)
  - Psychomotor hyperactivity [Unknown]
  - Organic brain syndrome [Unknown]
  - Brain oedema [Unknown]
  - Cerebral ischaemia [Unknown]
  - Cerebral haemorrhage [Recovering/Resolving]

NARRATIVE: CASE EVENT DATE: 201801
